FAERS Safety Report 19057972 (Version 1)
Quarter: 2021Q1

REPORT INFORMATION
  Report Type: Spontaneous
  Country: US (occurrence: US)
  Receive Date: 20210324
  Receipt Date: 20210324
  Transmission Date: 20210420
  Serious: No
  Sender: FDA-Public Use
  Company Number: US-UPSHER-SMITH LABORATORIES, LLC-2020USL00534

PATIENT
  Sex: Female

DRUGS (2)
  1. PREVALITE [Suspect]
     Active Substance: CHOLESTYRAMINE
     Indication: ILL-DEFINED DISORDER
     Dosage: UNK
     Dates: start: 202008, end: 2020
  2. PREVALITE [Suspect]
     Active Substance: CHOLESTYRAMINE
     Indication: UNEVALUABLE EVENT
     Dosage: UNK
     Dates: start: 202009

REACTIONS (8)
  - Cough [Unknown]
  - Dyspnoea [Unknown]
  - Pyrexia [Unknown]
  - Throat irritation [Unknown]
  - Pharyngeal disorder [Unknown]
  - Malaise [Unknown]
  - Reaction to excipient [Unknown]
  - Chest pain [Unknown]

NARRATIVE: CASE EVENT DATE: 2020
